FAERS Safety Report 8218332-8 (Version None)
Quarter: 2012Q1

REPORT INFORMATION
  Report Type: 
  Country: None (occurrence: None)
  Receive Date: 20120319
  Receipt Date: 20120315
  Transmission Date: 20120608
  Serious: Yes (Hospitalization)
  Sender: FDA-Public Use
  Company Number: US-GLAXOSMITHKLINE-A0932396A

PATIENT
  Age: 53 Year
  Sex: Male

DRUGS (2)
  1. AVANDIA [Suspect]
     Indication: DIABETES MELLITUS
     Dosage: 4MG PER DAY
     Route: 048
     Dates: start: 20050601, end: 20070601
  2. AVANDAMET [Suspect]
     Indication: DIABETES MELLITUS
     Route: 048
     Dates: start: 20040413, end: 20050401

REACTIONS (9)
  - CARDIAC DISORDER [None]
  - AMNESIA [None]
  - CEREBROVASCULAR ACCIDENT [None]
  - RETINOPATHY [None]
  - DISORIENTATION [None]
  - APHASIA [None]
  - DISTURBANCE IN ATTENTION [None]
  - CARDIOVASCULAR DISORDER [None]
  - DEAFNESS UNILATERAL [None]
